FAERS Safety Report 12238709 (Version 1)
Quarter: 2016Q2

REPORT INFORMATION
  Report Type: Spontaneous
  Country: US (occurrence: None)
  Receive Date: 20160404
  Receipt Date: 20160404
  Transmission Date: 20160815
  Serious: Yes (Hospitalization)
  Sender: FDA-Public Use
  Company Number: None

PATIENT
  Age: 73 Year
  Sex: Male
  Weight: 70 kg

DRUGS (31)
  1. RIVAROXABAN [Suspect]
     Active Substance: RIVAROXABAN
     Indication: ATRIAL FIBRILLATION
     Route: 048
  2. CARVEDILOL (COREG) [Concomitant]
  3. FLOMAX [Concomitant]
     Active Substance: TAMSULOSIN HYDROCHLORIDE
  4. ACETAMINOPHEN (TYLENOL ARTHRITIS PAIN) [Concomitant]
  5. VITAMIN B12 [Concomitant]
     Active Substance: CYANOCOBALAMIN
  6. SPIRONOLACTONE (ALDACTONE) [Concomitant]
  7. QUININE SULFATE. [Concomitant]
     Active Substance: QUININE SULFATE
  8. PRAMIPEXOLE (MIRAPEX) [Concomitant]
  9. PANTOPRAZOLE (PROTONIX) [Concomitant]
  10. GREEN TEA, CAMILLIA SINENSIS [Concomitant]
  11. BLACK CUMIN SEED OIL [Concomitant]
  12. CYCLOBENZAPRINE (FLEXERIL) [Concomitant]
  13. GLIMEPIRIDE (AMARYL) [Concomitant]
  14. POTASSIUM [Concomitant]
     Active Substance: POTASSIUM
  15. ALLOPURINOL (ZYLOPRIM) [Concomitant]
  16. COLCHICINE (COLCRYS) [Concomitant]
  17. LEVOTHYROXINE (SYNTHROID, LEVOTHROID) [Concomitant]
  18. NORCO [Concomitant]
     Active Substance: ACETAMINOPHEN\HYDROCODONE BITARTRATE
  19. FLEXDERMAL (TOPICAL WITH CAMPHOR + MENTHOL) [Concomitant]
  20. CHOLECALCIFEROL [Concomitant]
     Active Substance: CHOLECALCIFEROL
  21. KELP [Concomitant]
     Active Substance: KELP
  22. ASPIRIN. [Concomitant]
     Active Substance: ASPIRIN
  23. CINNAMON. [Concomitant]
     Active Substance: CINNAMON
  24. OMEGA-3 FATTY ACIDS (FISH OIL) [Concomitant]
  25. TART CHERRY ADVANCED CAPS [Concomitant]
  26. MULTIPLE VITAMIN [Concomitant]
     Active Substance: VITAMINS
  27. CLOPIDOGREL [Suspect]
     Active Substance: CLOPIDOGREL BISULFATE
     Indication: CORONARY ARTERY DISEASE
     Route: 048
  28. MENTHOL, TOPICAL ANALGESIC (BENGAY EX) [Concomitant]
  29. LASIX [Concomitant]
     Active Substance: FUROSEMIDE
  30. SILDENAFIL (REVATIO) [Concomitant]
  31. IODINE. [Concomitant]
     Active Substance: IODINE

REACTIONS (3)
  - Epistaxis [None]
  - Gastrointestinal haemorrhage [None]
  - Productive cough [None]

NARRATIVE: CASE EVENT DATE: 20160319
